FAERS Safety Report 20448332 (Version 1)
Quarter: 2022Q1

REPORT INFORMATION
  Report Type: Spontaneous
  Country: NO (occurrence: NO)
  Receive Date: 20220209
  Receipt Date: 20220209
  Transmission Date: 20220424
  Serious: Yes (Other)
  Sender: FDA-Public Use
  Company Number: None

PATIENT
  Age: 48 Year
  Sex: Female
  Weight: 103 kg

DRUGS (1)
  1. HYRIMOZ [Suspect]
     Active Substance: ADALIMUMAB-ADAZ
     Indication: Rheumatic disorder
     Dosage: UNK
     Route: 058

REACTIONS (12)
  - Rectal haemorrhage [Not Recovered/Not Resolved]
  - Haematochezia [Unknown]
  - Sjogren^s syndrome [Not Recovered/Not Resolved]
  - Dry mouth [Unknown]
  - Mouth swelling [Unknown]
  - Eye pain [Unknown]
  - Anorectal discomfort [Unknown]
  - Vulvovaginal dryness [Unknown]
  - Anal eczema [Not Recovered/Not Resolved]
  - Dry eye [Unknown]
  - Haemorrhoids [Unknown]
  - Vulvovaginal discomfort [Unknown]

NARRATIVE: CASE EVENT DATE: 20210101
